FAERS Safety Report 16337118 (Version 3)
Quarter: 2019Q2

REPORT INFORMATION
  Report Type: Spontaneous
  Country: PR (occurrence: PR)
  Receive Date: 20190521
  Receipt Date: 20190626
  Transmission Date: 20190711
  Serious: No
  Sender: FDA-Public Use
  Company Number: PR-PFIZER INC-2019212810

PATIENT
  Age: 46 Year
  Sex: Female
  Weight: 70.3 kg

DRUGS (2)
  1. IBRANCE [Suspect]
     Active Substance: PALBOCICLIB
     Indication: BREAST CANCER FEMALE
     Dosage: 125 MG, 1X/DAY (FOR 21 DAYS)
     Route: 048
     Dates: start: 20190116
  2. IBRANCE [Suspect]
     Active Substance: PALBOCICLIB
     Dosage: UNK
     Route: 048

REACTIONS (8)
  - Catarrh [Unknown]
  - Pyrexia [Unknown]
  - Vomiting [Unknown]
  - Nausea [Unknown]
  - Dry mouth [Unknown]
  - Asthenia [Unknown]
  - Headache [Unknown]
  - Alopecia [Unknown]

NARRATIVE: CASE EVENT DATE: 2019
